FAERS Safety Report 7720225-7 (Version None)
Quarter: 2011Q3

REPORT INFORMATION
  Report Type: 
  Country: None (occurrence: None)
  Receive Date: 20110831
  Receipt Date: 20110825
  Transmission Date: 20111222
  Serious: Yes (Other)
  Sender: FDA-Public Use
  Company Number: DE-PFIZER INC-2011200152

PATIENT
  Sex: Male

DRUGS (2)
  1. PREGABALIN [Suspect]
     Dosage: UNK
  2. CLOZAPINE [Suspect]
     Dosage: UNK

REACTIONS (1)
  - AGRANULOCYTOSIS [None]
